FAERS Safety Report 4615796-3 (Version None)
Quarter: 2005Q1

REPORT INFORMATION
  Report Type: 
  Country: None (occurrence: None)
  Receive Date: 20050317
  Receipt Date: 20050303
  Transmission Date: 20050727
  Serious: Yes (Death)
  Sender: FDA-Public Use
  Company Number: 2005S1000947

PATIENT
  Age: 48 Year
  Sex: Male

DRUGS (2)
  1. CLOZAPINE [Suspect]
     Dosage: 300 MG; QAM; PO;   400 MG; HS; PO
     Route: 048
     Dates: start: 20010116
  2. CLOZAPINE [Suspect]
     Dosage: 300 MG; QAM; PO;   400 MG; HS; PO
     Route: 048
     Dates: start: 20010116

REACTIONS (1)
  - DEATH [None]
